FAERS Safety Report 26042043 (Version 1)
Quarter: 2025Q4

REPORT INFORMATION
  Report Type: Spontaneous
  Country: US (occurrence: US)
  Receive Date: 20251113
  Receipt Date: 20251113
  Transmission Date: 20260117
  Serious: Yes (Hospitalization, Other)
  Sender: MYLAN
  Company Number: US-MYLANLABS-2025M1096216

PATIENT
  Sex: Female

DRUGS (13)
  1. XANAX [Suspect]
     Active Substance: ALPRAZOLAM
     Indication: Bipolar disorder
     Dosage: UNK
  2. LURASIDONE [Suspect]
     Active Substance: LURASIDONE
     Indication: Bipolar disorder
     Dosage: 60 MILLIGRAM
  3. LURASIDONE [Suspect]
     Active Substance: LURASIDONE
     Dosage: 80 MILLIGRAM
  4. LURASIDONE [Suspect]
     Active Substance: LURASIDONE
     Dosage: 120 MILLIGRAM
  5. PERCOCET [Concomitant]
     Active Substance: ACETAMINOPHEN\OXYCODONE HYDROCHLORIDE
     Dosage: UNK
  6. GABAPENTIN [Concomitant]
     Active Substance: GABAPENTIN
     Dosage: UNK
  7. ELIQUIS [Concomitant]
     Active Substance: APIXABAN
     Dosage: UNK
  8. PANTOPRAZOLE [Concomitant]
     Active Substance: PANTOPRAZOLE
     Dosage: UNK
  9. HYDROCHLOROTHIAZIDE [Concomitant]
     Active Substance: HYDROCHLOROTHIAZIDE
     Dosage: UNK
  10. METOPROLOL [Concomitant]
     Active Substance: METOPROLOL
     Dosage: UNK
  11. CARAFATE [Concomitant]
     Active Substance: SUCRALFATE
     Dosage: UNK
  12. PRILOSEC [Concomitant]
     Active Substance: OMEPRAZOLE MAGNESIUM
     Dosage: UNK
  13. IBUPROFEN [Concomitant]
     Active Substance: IBUPROFEN
     Dosage: UNK

REACTIONS (8)
  - Intracranial infection [Unknown]
  - Urinary tract infection [Unknown]
  - Kidney infection [Unknown]
  - Haematological infection [Unknown]
  - Asthenia [Unknown]
  - Coma [Recovered/Resolved]
  - Amnesia [Unknown]
  - Drug ineffective [Unknown]

NARRATIVE: CASE EVENT DATE: 20250101
